FAERS Safety Report 12821718 (Version 1)
Quarter: 2016Q4

REPORT INFORMATION
  Report Type: Spontaneous
  Country: US (occurrence: US)
  Receive Date: 20161007
  Receipt Date: 20161007
  Transmission Date: 20170207
  Serious: No
  Sender: FDA-Public Use
  Company Number: US-TEVA-699627USA

PATIENT
  Age: 49 Year
  Sex: Female

DRUGS (15)
  1. D 1000 [Concomitant]
     Active Substance: CHOLECALCIFEROL
     Dates: start: 20150116
  2. ASPIRIN. [Concomitant]
     Active Substance: ASPIRIN
     Dates: start: 20150116
  3. PREDNISOLONE SUS OP [Concomitant]
     Dates: start: 20160906
  4. COPAXONE [Suspect]
     Active Substance: GLATIRAMER ACETATE
     Route: 058
     Dates: start: 201501
  5. DULERA [Concomitant]
     Active Substance: FORMOTEROL FUMARATE DIHYDRATE\MOMETASONE FUROATE
     Dosage: 200-5MCG
     Dates: start: 20150116
  6. EFFEXOR XR [Concomitant]
     Active Substance: VENLAFAXINE HYDROCHLORIDE
     Dates: start: 20150116
  7. KETOCONAZOLE SHA [Concomitant]
     Dates: start: 20160104, end: 20160203
  8. ESCITALOPRAM [Concomitant]
     Active Substance: ESCITALOPRAM OXALATE
     Dates: start: 20150116
  9. AMOXICILLIN. [Concomitant]
     Active Substance: AMOXICILLIN
     Dates: start: 20160610, end: 20160620
  10. PREDNISOLONE SUS OP [Concomitant]
     Dates: start: 20151006, end: 20151118
  11. KETOROLAC SOL [Concomitant]
     Dates: start: 20160906
  12. MONTELUKAST [Concomitant]
     Active Substance: MONTELUKAST SODIUM
     Dates: start: 20160908
  13. ERYTHROMYCIN OIN OP [Concomitant]
     Dates: start: 20151006, end: 20151020
  14. HYDROCODONE [Concomitant]
     Active Substance: HYDROCODONE
     Dosage: 7.5-200
     Dates: start: 20160610, end: 20160616
  15. PREDNISOLONE SUS OP [Concomitant]
     Dates: start: 20160705, end: 20160818

REACTIONS (1)
  - Asthma [Unknown]

NARRATIVE: CASE EVENT DATE: 201608
